FAERS Safety Report 8801149 (Version 1)
Quarter: 2012Q4

REPORT INFORMATION
  Report Type: 
  Country: US (occurrence: US)
  Receive Date: 20120921
  Receipt Date: 20120921
  Transmission Date: 20130627
  Serious: Yes (Other)
  Sender: FDA-Public Use
  Company Number: PHEH2012US018435

PATIENT
  Age: 50 Year
  Sex: Male
  Weight: 58.5 kg

DRUGS (9)
  1. GILENYA [Suspect]
     Dosage: 0.5 mg, QD
     Route: 048
  2. ADVAIR [Concomitant]
  3. FLONASE [Concomitant]
  4. ZOLOFT [Concomitant]
  5. LISINOPRIL [Concomitant]
  6. SYNTHROID [Concomitant]
  7. GABAPENTIN [Concomitant]
  8. TRAZODONE [Concomitant]
  9. VITAMIN B12 [Concomitant]

REACTIONS (2)
  - Eye haemorrhage [Unknown]
  - Weight decreased [Unknown]
